FAERS Safety Report 6047785-9 (Version None)
Quarter: 2009Q1

REPORT INFORMATION
  Report Type: 
  Country: None (occurrence: None)
  Receive Date: 20090123
  Receipt Date: 20090113
  Transmission Date: 20090719
  Serious: Yes (Other)
  Sender: FDA-Public Use
  Company Number: GB-AMGEN-US324222

PATIENT
  Sex: Female

DRUGS (4)
  1. ENBREL [Suspect]
     Indication: RHEUMATOID ARTHRITIS
     Route: 058
     Dates: start: 20050401
  2. PREDNISOLONE [Concomitant]
     Dosage: 5 MG EVERY 1 PRN
     Route: 048
  3. CALCIUM WITH VITAMIN D [Concomitant]
     Route: 048
     Dates: start: 20081001
  4. DICLOFENAC [Concomitant]
     Route: 048

REACTIONS (2)
  - PARAESTHESIA [None]
  - PERIPHERAL SENSORY NEUROPATHY [None]
